FAERS Safety Report 7221612-6 (Version None)
Quarter: 2011Q1

REPORT INFORMATION
  Report Type: 
  Country: None (occurrence: None)
  Receive Date: 20110112
  Receipt Date: 20110111
  Transmission Date: 20110831
  Serious: Yes (Hospitalization)
  Sender: FDA-Public Use
  Company Number: BE-ROCHE-730481

PATIENT
  Sex: Male

DRUGS (5)
  1. SPIRIVA [Concomitant]
     Indication: ASTHMA
     Dosage: DOSE: 1 PUFF
  2. RIBAVIRIN [Suspect]
     Indication: HEPATITIS C
     Route: 048
     Dates: start: 20100802, end: 20100915
  3. KALETRA [Concomitant]
     Dosage: DOSE: 200 + 50MG
     Route: 048
     Dates: start: 20090317
  4. KIVEXA [Concomitant]
     Dosage: DOSE: 600/300 M DAILY
     Route: 048
     Dates: start: 20090317
  5. PEGINTERFERON ALFA-2A [Suspect]
     Indication: HEPATITIS C
     Route: 058
     Dates: start: 20100802, end: 20100915

REACTIONS (1)
  - DELIRIUM [None]
